FAERS Safety Report 23498864 (Version 1)
Quarter: 2024Q1

REPORT INFORMATION
  Report Type: Report from Study
  Country: CA (occurrence: CA)
  Receive Date: 20240208
  Receipt Date: 20240208
  Transmission Date: 20240409
  Serious: Yes (Other)
  Sender: FDA-Public Use
  Company Number: CA-ABBVIE-5623087

PATIENT
  Sex: Female

DRUGS (1)
  1. HUMIRA [Suspect]
     Active Substance: ADALIMUMAB
     Indication: Crohn^s disease
     Route: 058
     Dates: start: 20180301

REACTIONS (9)
  - Spinal meningioma benign [Unknown]
  - Paraplegia [Recovering/Resolving]
  - Symptom recurrence [Not Recovered/Not Resolved]
  - Dyspepsia [Unknown]
  - Spinal cord injury [Unknown]
  - Anal incontinence [Unknown]
  - Urinary incontinence [Unknown]
  - Ankle fracture [Unknown]
  - Abdominal pain lower [Unknown]
